FAERS Safety Report 11999101 (Version 3)
Quarter: 2019Q3

REPORT INFORMATION
  Report Type: Spontaneous
  Country: FR (occurrence: FR)
  Receive Date: 20160204
  Receipt Date: 20190715
  Transmission Date: 20191004
  Serious: Yes (Hospitalization)
  Sender: FDA-Public Use
  Company Number: FR-009507513-1602FRA001472

PATIENT
  Age: 16 Year
  Sex: Male
  Weight: 58.3 kg

DRUGS (7)
  1. PLITICAN [Suspect]
     Active Substance: ALIZAPRIDE HYDROCHLORIDE
     Dosage: UNK
     Dates: start: 20151209
  2. CISPLATIN ACCORD [Suspect]
     Active Substance: CISPLATIN
     Dosage: UNK
     Route: 041
     Dates: start: 20151209, end: 20151209
  3. EMEND [Suspect]
     Active Substance: APREPITANT
     Dosage: UNK
     Route: 048
     Dates: start: 20151209
  4. FLUOROURACIL. [Interacting]
     Active Substance: FLUOROURACIL
     Indication: NASOPHARYNGEAL CANCER
     Dosage: 1ST CYCLE
     Route: 041
     Dates: start: 20151210, end: 20160111
  5. ZOPHREN (ONDANSETRON) [Suspect]
     Active Substance: ONDANSETRON
     Dosage: UNK
     Dates: start: 20151209
  6. FLUOROURACIL. [Interacting]
     Active Substance: FLUOROURACIL
     Dosage: 2ND CYCLE
     Dates: start: 20160104, end: 20160111
  7. SOLU-MEDROL [Suspect]
     Active Substance: METHYLPREDNISOLONE SODIUM SUCCINATE
     Dosage: UNK
     Route: 041
     Dates: start: 20151209, end: 20151209

REACTIONS (2)
  - Hyperammonaemia [Not Recovered/Not Resolved]
  - Hyperammonaemic encephalopathy [Recovered/Resolved]

NARRATIVE: CASE EVENT DATE: 20151214
